FAERS Safety Report 21175127 (Version 1)
Quarter: 2022Q3

REPORT INFORMATION
  Report Type: Spontaneous
  Country: US (occurrence: US)
  Receive Date: 20220805
  Receipt Date: 20220805
  Transmission Date: 20221027
  Serious: Yes (Life-Threatening, Other)
  Sender: FDA-Public Use
  Company Number: US-UCBSA-2022043114

PATIENT
  Age: 50 Year
  Sex: Male

DRUGS (1)
  1. KEPPRA [Suspect]
     Active Substance: LEVETIRACETAM
     Indication: Product used for unknown indication
     Dosage: 200 MILLIGRAM, UNK
     Dates: start: 20180401, end: 20180801

REACTIONS (6)
  - Near death experience [Recovering/Resolving]
  - Brain neoplasm [Recovering/Resolving]
  - Seizure [Recovering/Resolving]
  - Behaviour disorder [Recovering/Resolving]
  - Fatigue [Recovering/Resolving]
  - Radiotherapy [Unknown]

NARRATIVE: CASE EVENT DATE: 20180401
